FAERS Safety Report 14858554 (Version 2)
Quarter: 2018Q2

REPORT INFORMATION
  Report Type: Report from Study
  Country: None (occurrence: US)
  Receive Date: 20180508
  Receipt Date: 20180527
  Transmission Date: 20180711
  Serious: Yes (Hospitalization, Other)
  Sender: FDA-Public Use
  Company Number: US-ABBVIE-18K-163-2348153-00

PATIENT
  Age: 65 Year
  Sex: Female
  Weight: 69.01 kg

DRUGS (7)
  1. NEXIUM [Concomitant]
     Active Substance: ESOMEPRAZOLE MAGNESIUM
     Indication: GASTROOESOPHAGEAL REFLUX DISEASE
  2. HUMIRA [Suspect]
     Active Substance: ADALIMUMAB
     Indication: RHEUMATOID ARTHRITIS
     Route: 058
     Dates: start: 2016, end: 20180401
  3. CYMBALTA [Concomitant]
     Active Substance: DULOXETINE HYDROCHLORIDE
     Indication: RHEUMATOID ARTHRITIS
  4. ARITZIA [Concomitant]
     Indication: RHEUMATOID ARTHRITIS
  5. BYSTOLIC [Concomitant]
     Active Substance: NEBIVOLOL HYDROCHLORIDE
     Indication: HYPERTENSION
  6. HYDROCHLOROTHIAZIDE. [Concomitant]
     Active Substance: HYDROCHLOROTHIAZIDE
     Indication: DIURETIC THERAPY
  7. DIFLUCAN [Concomitant]
     Active Substance: FLUCONAZOLE
     Indication: PRODUCT USED FOR UNKNOWN INDICATION

REACTIONS (11)
  - Hypophagia [Recovering/Resolving]
  - Incision site pain [Recovering/Resolving]
  - Incision site abscess [Recovered/Resolved]
  - Asthenia [Recovering/Resolving]
  - Injection site pain [Recovered/Resolved]
  - Large intestine perforation [Recovered/Resolved]
  - Gastrointestinal infection [Recovered/Resolved]
  - Flatulence [Recovered/Resolved]
  - Diverticular perforation [Recovered/Resolved]
  - Hypertension [Recovered/Resolved]
  - Weight decreased [Recovering/Resolving]

NARRATIVE: CASE EVENT DATE: 201612
